FAERS Safety Report 25024455 (Version 1)
Quarter: 2025Q1

REPORT INFORMATION
  Report Type: Spontaneous
  Country: MY (occurrence: MY)
  Receive Date: 20250228
  Receipt Date: 20250228
  Transmission Date: 20250408
  Serious: Yes (Other)
  Sender: GLAXOSMITHKLINE
  Company Number: MY-GLAXOSMITHKLINE INC-MY2025APC022235

PATIENT

DRUGS (8)
  1. VALTREX [Suspect]
     Active Substance: VALACYCLOVIR HYDROCHLORIDE
     Indication: Herpes zoster
     Route: 048
  2. Neurotin [Concomitant]
     Indication: Product used for unknown indication
  3. Neurotin [Concomitant]
  4. DAYVIGO [Concomitant]
     Active Substance: LEMBOREXANT
     Indication: Product used for unknown indication
  5. NEUROBION [Concomitant]
     Active Substance: CYANOCOBALAMIN\PYRIDOXINE\THIAMINE
     Indication: Product used for unknown indication
     Dosage: 1 DF, QD
  6. LYRICA [Concomitant]
     Active Substance: PREGABALIN
     Indication: Product used for unknown indication
     Dosage: 75 MG, BID
  7. LYRICA [Concomitant]
     Active Substance: PREGABALIN
     Dosage: 150 MG, BID
  8. JANUMET XR [Concomitant]
     Active Substance: METFORMIN HYDROCHLORIDE\SITAGLIPTIN PHOSPHATE
     Indication: Product used for unknown indication
     Dosage: 1 DF, QD, (50/500)
     Route: 048

REACTIONS (5)
  - Ophthalmic herpes zoster [Recovering/Resolving]
  - Insomnia [Recovering/Resolving]
  - Lethargy [Unknown]
  - Hypophagia [Unknown]
  - Skin lesion [Recovering/Resolving]
